FAERS Safety Report 5707151-X (Version None)
Quarter: 2008Q2

REPORT INFORMATION
  Report Type: 
  Country: None (occurrence: None)
  Receive Date: 20080414
  Receipt Date: 20080414
  Transmission Date: 20081010
  Serious: Yes (Life-Threatening, Other)
  Sender: FDA-Public Use
  Company Number: None

PATIENT
  Sex: Female
  Weight: 90.7194 kg

DRUGS (2)
  1. SINGULAIR [Suspect]
     Indication: ASTHMA
     Dosage: 40 MG  Q HS PO
     Route: 048
     Dates: start: 20030301, end: 20080315
  2. SINGULAIR [Suspect]
     Indication: HYPERSENSITIVITY
     Dosage: 40 MG  Q HS PO
     Route: 048
     Dates: start: 20030301, end: 20080315

REACTIONS (3)
  - ANXIETY [None]
  - DEPRESSION [None]
  - SUICIDAL IDEATION [None]
